FAERS Safety Report 25833750 (Version 1)
Quarter: 2025Q3

REPORT INFORMATION
  Report Type: Spontaneous
  Country: US (occurrence: US)
  Receive Date: 20250923
  Receipt Date: 20250923
  Transmission Date: 20251020
  Serious: Yes (Other)
  Sender: JOHNSON AND JOHNSON
  Company Number: US-JNJFOC-20250915372

PATIENT
  Sex: Female

DRUGS (1)
  1. ELMIRON [Suspect]
     Active Substance: PENTOSAN POLYSULFATE SODIUM
     Indication: Cystitis interstitial
     Dosage: TAKE 100 MG 2 CAPSULES (200 MG) BY ORAL ROUTE 2 TIMES A DAY
     Route: 048
     Dates: end: 202202

REACTIONS (2)
  - Maculopathy [Unknown]
  - Off label use [Unknown]
